FAERS Safety Report 22201648 (Version 1)
Quarter: 2023Q2

REPORT INFORMATION
  Report Type: Spontaneous
  Country: US (occurrence: None)
  Receive Date: 20230411
  Receipt Date: 20230411
  Transmission Date: 20230721
  Serious: Yes (Life-Threatening)
  Sender: FDA-Public Use
  Company Number: None

PATIENT
  Age: 18 Year
  Sex: Female
  Weight: 55.35 kg

DRUGS (4)
  1. METHYLPREDNISOLONE SODIUM SUCCINATE H-3 [Suspect]
     Active Substance: METHYLPREDNISOLONE SODIUM SUCCINATE H-3
  2. PEPCID [Concomitant]
     Active Substance: FAMOTIDINE
  3. HYOSCYAMINE [Concomitant]
     Active Substance: HYOSCYAMINE
  4. albuterol as needed [Concomitant]

REACTIONS (4)
  - Anaphylactic reaction [None]
  - Vomiting [None]
  - Abdominal pain upper [None]
  - Product use complaint [None]

NARRATIVE: CASE EVENT DATE: 20230411
